FAERS Safety Report 4715018-9 (Version None)
Quarter: 2005Q2

REPORT INFORMATION
  Report Type: 
  Country: None (occurrence: None)
  Receive Date: 20050630
  Receipt Date: 20050401
  Transmission Date: 20051028
  Serious: Yes (Death, Hospitalization)
  Sender: FDA-Public Use
  Company Number: 211929

PATIENT
  Age: 52 Year
  Sex: Male
  Weight: 139.7 kg

DRUGS (5)
  1. AVASTIN [Suspect]
     Indication: COLON CANCER METASTATIC
     Dosage: 750 MG, Q2W, INTRAVENOUS
     Route: 042
     Dates: start: 20040928
  2. MISTLETOE (MISTLETOE) [Concomitant]
  3. WELLBUTRIN [Concomitant]
  4. ACTOS [Concomitant]
  5. COUMADIN [Concomitant]

REACTIONS (2)
  - DEEP VEIN THROMBOSIS [None]
  - INFARCTION [None]
